FAERS Safety Report 8202572 (Version 2)
Quarter: 2016Q1

REPORT INFORMATION
  Report Type: Report from Study
  Country: DE (occurrence: DE)
  Receive Date: 20111027
  Receipt Date: 20160328
  Transmission Date: 20160526
  Serious: Yes (Death, Hospitalization)
  Sender: FDA-Public Use
  Company Number: DE-ROCHE-1002515

PATIENT
  Age: 47 Year
  Sex: Male
  Weight: 85 kg

DRUGS (10)
  1. SEVREDOL [Concomitant]
     Active Substance: MORPHINE
  2. SPIRONOLACTON [Concomitant]
     Active Substance: SPIRONOLACTONE
     Dosage: 1 DF/DAY
     Route: 065
  3. PLACEBO [Suspect]
     Active Substance: UNSPECIFIED INGREDIENT
     Indication: MALIGNANT ASCITES
     Route: 033
     Dates: start: 20110928, end: 20111004
  4. MORPHINE [Concomitant]
     Active Substance: MORPHINE
  5. LYRICA [Concomitant]
     Active Substance: PREGABALIN
     Dosage: 4X100 MG
     Route: 065
  6. MST (GERMANY) [Concomitant]
     Dosage: 4 DF/DAY
     Route: 065
  7. L-THYROXIN [Concomitant]
     Active Substance: LEVOTHYROXINE SODIUM
     Route: 065
  8. PLACEBO [Suspect]
     Active Substance: UNSPECIFIED INGREDIENT
     Indication: GASTROINTESTINAL CARCINOMA
  9. PANTOZOL [Concomitant]
     Active Substance: PANTOPRAZOLE SODIUM
     Route: 065
  10. TORASEMID [Concomitant]
     Active Substance: TORSEMIDE
     Dosage: 1 DF/DAY
     Route: 065

REACTIONS (1)
  - Acute kidney injury [Fatal]

NARRATIVE: CASE EVENT DATE: 20111004
